FAERS Safety Report 8779313 (Version 1)
Quarter: 2012Q4

REPORT INFORMATION
  Report Type: 
  Country: US (occurrence: US)
  Receive Date: 20120912
  Receipt Date: 20120912
  Transmission Date: 20130627
  Serious: Yes (Hospitalization)
  Sender: FDA-Public Use
  Company Number: US-MYLANLABS-2012S1018115

PATIENT
  Age: 52 Year
  Sex: Male

DRUGS (2)
  1. SERTRALINE [Suspect]
     Indication: DEPRESSION
     Dosage: escalated to 200mg over 6 months
     Route: 065
  2. SERTRALINE [Suspect]
     Indication: DEPRESSION
     Dosage: 400mg for 3 weeks
     Route: 065

REACTIONS (2)
  - Diffuse alveolar damage [Recovering/Resolving]
  - Respiratory failure [Recovering/Resolving]
